FAERS Safety Report 10058213 (Version 1)
Quarter: 2014Q2

REPORT INFORMATION
  Report Type: Spontaneous
  Country: US (occurrence: None)
  Receive Date: 20140403
  Receipt Date: 20140403
  Transmission Date: 20141212
  Serious: Yes (Other)
  Sender: FDA-Public Use
  Company Number: None

PATIENT
  Age: 66 Year
  Sex: Female
  Weight: 88.91 kg

DRUGS (13)
  1. SERTRALINE HCL [Suspect]
     Indication: PANIC ATTACK
     Dates: start: 20140314, end: 20140317
  2. SERTRALINE HCL [Suspect]
     Indication: DEPRESSION
     Dates: start: 20140314, end: 20140317
  3. X2=XFAXIN [Concomitant]
  4. SOVCLA [Concomitant]
  5. RIBAVIN [Concomitant]
  6. ZINC [Concomitant]
  7. LACHILOX [Concomitant]
  8. SPINOOLACTONE [Concomitant]
  9. BVMOS [Concomitant]
  10. ZOFRAN [Concomitant]
  11. METOPROLOL [Concomitant]
  12. EXTRADIOL [Concomitant]
  13. SARNA LOTION [Concomitant]

REACTIONS (5)
  - Fatigue [None]
  - Hypersomnia [None]
  - Activities of daily living impaired [None]
  - Hepatic encephalopathy [None]
  - Disease recurrence [None]
